FAERS Safety Report 8511895-4 (Version None)
Quarter: 2012Q3

REPORT INFORMATION
  Report Type: 
  Country: None (occurrence: None)
  Receive Date: 20120716
  Receipt Date: 20120710
  Transmission Date: 20120928
  Serious: Yes (Hospitalization)
  Sender: FDA-Public Use
  Company Number: TN-PFIZER INC-2012165904

PATIENT
  Age: 66 Year
  Sex: Female

DRUGS (4)
  1. LYRICA [Suspect]
     Indication: NEURALGIA
  2. NICARDIPINE HCL [Concomitant]
  3. ATACAND [Concomitant]
  4. LYRICA [Suspect]
     Indication: VASCULITIS
     Dosage: 150 MG, 2X/DAY
     Route: 048

REACTIONS (7)
  - OEDEMA MOUTH [None]
  - TONGUE OEDEMA [None]
  - EYELID OEDEMA [None]
  - OEDEMA PERIPHERAL [None]
  - LOCALISED OEDEMA [None]
  - LARYNGEAL OEDEMA [None]
  - FACE OEDEMA [None]
